FAERS Safety Report 10459249 (Version 1)
Quarter: 2014Q3

REPORT INFORMATION
  Report Type: Spontaneous
  Country: FR (occurrence: FR)
  Receive Date: 20140917
  Receipt Date: 20140917
  Transmission Date: 20150326
  Serious: Yes (Hospitalization)
  Sender: FDA-Public Use
  Company Number: FR-SA-2014SA124684

PATIENT
  Age: 81 Year
  Sex: Female
  Weight: 58.7 kg

DRUGS (13)
  1. ALLOPURINOL. [Concomitant]
     Active Substance: ALLOPURINOL
  2. SEROPLEX [Concomitant]
     Active Substance: ESCITALOPRAM OXALATE
  3. PREVISCAN [Concomitant]
     Active Substance: FLUINDIONE
  4. LEVOTHYROX [Concomitant]
     Active Substance: LEVOTHYROXINE
  5. MOPRAL [Concomitant]
     Active Substance: OMEPRAZOLE SODIUM
  6. CALCIDIA [Concomitant]
     Active Substance: CALCIUM POLYCARBOPHIL
  7. DIFFU K [Concomitant]
     Active Substance: POTASSIUM CHLORIDE
  8. LASILIX [Suspect]
     Active Substance: FUROSEMIDE
     Route: 048
     Dates: end: 201404
  9. PHYSIOTENS [Concomitant]
     Active Substance: MOXONIDINE
  10. ACEBUTOLOL [Concomitant]
     Active Substance: ACEBUTOLOL
  11. PARACETAMOL [Concomitant]
     Active Substance: ACETAMINOPHEN
  12. TAHOR [Concomitant]
     Active Substance: ATORVASTATIN CALCIUM
  13. CALCIPARINE [Concomitant]
     Active Substance: HEPARIN CALCIUM
     Route: 058

REACTIONS (3)
  - Fall [Recovered/Resolved]
  - Orthostatic hypotension [Recovered/Resolved]
  - Malaise [Recovered/Resolved]

NARRATIVE: CASE EVENT DATE: 2014
